FAERS Safety Report 9424482 (Version 1)
Quarter: 2013Q3

REPORT INFORMATION
  Report Type: Spontaneous
  Country: DE (occurrence: DE)
  Receive Date: 20130729
  Receipt Date: 20130729
  Transmission Date: 20140515
  Serious: Yes (Other)
  Sender: FDA-Public Use
  Company Number: DE-UCBSA-093009

PATIENT
  Age: 24 Year
  Sex: Male
  Weight: 80 kg

DRUGS (3)
  1. VIMPAT [Suspect]
     Dosage: DOSE:INGESTED QUANTITY 1TABLET OF 100MG STRENGTH
     Dates: start: 201307
  2. KEPPRA [Suspect]
     Dosage: DOSE: INJESTED QUANTITY 1 TABLET OF 1000MG STRNGTH
     Dates: start: 201307
  3. APYDAN EXTENT [Suspect]
     Dosage: DOSE:INGESTED QUANTITY 3 TABLETS OF 900 MG (TOTAL DOSE:2700 MG)
     Dates: start: 201307

REACTIONS (2)
  - Accidental exposure to product [Unknown]
  - Epilepsy [Unknown]
